FAERS Safety Report 24280039 (Version 1)
Quarter: 2024Q3

REPORT INFORMATION
  Report Type: Spontaneous
  Country: JP (occurrence: JP)
  Receive Date: 20240904
  Receipt Date: 20240904
  Transmission Date: 20241017
  Serious: Yes (Other)
  Sender: ROCHE
  Company Number: JP-CHUGAI-2024029746AA

PATIENT
  Age: 6 Decade
  Sex: Female

DRUGS (2)
  1. TECENTRIQ [Suspect]
     Active Substance: ATEZOLIZUMAB
     Indication: Hepatocellular carcinoma
     Dosage: UNK
     Route: 042
  2. AVASTIN [Suspect]
     Active Substance: BEVACIZUMAB
     Indication: Hepatocellular carcinoma
     Dosage: UNK
     Route: 042

REACTIONS (4)
  - Anaemia [Not Recovered/Not Resolved]
  - Haemorrhoidal haemorrhage [Unknown]
  - Haemorrhoids [Unknown]
  - Portal vein thrombosis [Not Recovered/Not Resolved]
